FAERS Safety Report 10967523 (Version 1)
Quarter: 2015Q1

REPORT INFORMATION
  Report Type: Spontaneous
  Country: US (occurrence: US)
  Receive Date: 20150330
  Receipt Date: 20150330
  Transmission Date: 20150721
  Serious: No
  Sender: FDA-Public Use
  Company Number: US-PFIZER INC-2015104786

PATIENT

DRUGS (4)
  1. XANAX [Suspect]
     Active Substance: ALPRAZOLAM
     Dosage: 0.25 (NO UNITS), 1 1/2 TABLETS AT AN UNKNOWN FREQUENCY
  2. ATIVAN [Suspect]
     Active Substance: LORAZEPAM
  3. XANAX [Suspect]
     Active Substance: ALPRAZOLAM
     Dosage: EVERY 6 HOURS
  4. XANAX [Suspect]
     Active Substance: ALPRAZOLAM
     Indication: SLEEP DISORDER
     Dosage: EVERY 5 HOURS

REACTIONS (12)
  - Feeling abnormal [Unknown]
  - Limb discomfort [Unknown]
  - Dry mouth [Unknown]
  - Body temperature increased [Unknown]
  - Panic reaction [Unknown]
  - Tinnitus [Unknown]
  - Malaise [Unknown]
  - Vision blurred [Unknown]
  - Drug ineffective [Unknown]
  - Anxiety [Unknown]
  - Dizziness [Unknown]
  - Fatigue [Unknown]

NARRATIVE: CASE EVENT DATE: 20150318
